FAERS Safety Report 5788512-X (Version None)
Quarter: 2008Q2

REPORT INFORMATION
  Report Type: 
  Country: None (occurrence: None)
  Receive Date: 20080625
  Receipt Date: 20080625
  Transmission Date: 20081010
  Serious: Yes (Hospitalization)
  Sender: FDA-Public Use
  Company Number: None

PATIENT
  Age: 41 Year
  Sex: Female
  Weight: 60 kg

DRUGS (4)
  1. OXALIPLATIN [Suspect]
     Indication: RECTAL CANCER
     Dosage: 400MG/M2 = 67MG WEEKLY IV
     Route: 042
     Dates: start: 20080605
  2. OXALIPLATIN [Suspect]
     Indication: RECTAL CANCER
     Dosage: 400MG/M2 = 67MG WEEKLY IV
     Route: 042
     Dates: start: 20080611
  3. FLUOROURACIL [Suspect]
     Indication: RECTAL CANCER
     Dosage: 200 MG/M2/D = 336 MG CONTINUOUS IV
     Route: 042
     Dates: start: 20080605, end: 20080618
  4. AVASTIN [Suspect]
     Indication: RECTAL CANCER
     Dosage: 5 MG/KG = 289 MG Q 2 WEEKS IV
     Route: 042

REACTIONS (6)
  - CATHETER SITE RELATED REACTION [None]
  - ERYTHEMA [None]
  - INCISION SITE COMPLICATION [None]
  - INFECTION [None]
  - PAIN [None]
  - PURULENCE [None]
